FAERS Safety Report 7930426-0 (Version None)
Quarter: 2011Q4

REPORT INFORMATION
  Report Type: 
  Country: None (occurrence: None)
  Receive Date: 20111117
  Receipt Date: 20111103
  Transmission Date: 20120403
  Serious: Yes (Death, Other)
  Sender: FDA-Public Use
  Company Number: 1103647

PATIENT
  Age: 41 Year
  Sex: Female

DRUGS (18)
  1. ACYCLOVIR [Concomitant]
  2. METHOTREXATE [Suspect]
     Indication: PRECURSOR T-LYMPHOBLASTIC LYMPHOMA/LEUKAEMIA
     Dosage: 200 MG/M^2 INTRAVENOUS (NOT OTHERWISE SPECIFIED ;  800 MG/M2 INTRAVENOUS (NOT OTHERWISE SPECIFIED)
     Route: 042
  3. (SULFAMETHOXAZOLE AND TRIMETHOPRIM) [Concomitant]
  4. FLUCONAZOLE [Concomitant]
  5. GANCICLOVIR [Concomitant]
  6. CYTARABINE [Suspect]
     Indication: PRECURSOR T-LYMPHOBLASTIC LYMPHOMA/LEUKAEMIA
     Dosage: 3 G/M^2 TWICE A DAY INTRAVENOUS (NOT OTHERWISE SPECIFIED)
     Route: 042
  7. CYCLOPHOSPHAMIDE [Suspect]
     Indication: PRECURSOR T-LYMPHOBLASTIC LYMPHOMA/LEUKAEMIA
     Dosage: 300 MG/M^2, INTRAVENOUS (NOT OTHERWISE SPECIFIED)
     Route: 042
  8. CYTARABINE [Suspect]
     Indication: PRECURSOR T-LYMPHOBLASTIC LYMPHOMA/LEUKAEMIA
     Dosage: 100 MG, INTRATHECAL
     Route: 037
  9. DIPHENHYDRAMINE HCL [Concomitant]
  10. (FILGRASTIM) [Concomitant]
  11. METHOTREXATE [Suspect]
     Indication: PRECURSOR T-LYMPHOBLASTIC LYMPHOMA/LEUKAEMIA
     Dosage: 12 MG, INTRATHECAL
     Route: 037
  12. VINCRISTINE SULFATE [Suspect]
     Indication: PRECURSOR T-LYMPHOBLASTIC LYMPHOMA/LEUKAEMIA
     Dosage: 1.4 MG/M^2, INTRAVENOUS BOLUS
     Route: 040
  13. DEXAMETHASONE [Suspect]
     Indication: PRECURSOR T-LYMPHOBLASTIC LYMPHOMA/LEUKAEMIA
     Dosage: 40 MG/DAY, INTRAVENOUS (NOT OTHERWISE SPECIFIED)
     Route: 042
  14. (MESNA) [Concomitant]
  15. DOXORUBICIN HCL [Suspect]
     Indication: PRECURSOR T-LYMPHOBLASTIC LYMPHOMA/LEUKAEMIA
     Dosage: 50 MG/M^2
  16. (ALEMTUZUMAB) [Suspect]
     Indication: PRECURSOR T-LYMPHOBLASTIC LYMPHOMA/LEUKAEMIA
     Dosage: 30 MG, SUBCUTANEOUS
     Route: 058
  17. LEUCOVORIN CALCIUM [Concomitant]
  18. ACETAMINOPHEN [Concomitant]

REACTIONS (3)
  - NEUTROPENIC SEPSIS [None]
  - CYTOMEGALOVIRUS INFECTION [None]
  - NEUTROPENIA [None]
